FAERS Safety Report 25779205 (Version 1)
Quarter: 2025Q3

REPORT INFORMATION
  Report Type: Spontaneous
  Country: US (occurrence: None)
  Receive Date: 20250909
  Receipt Date: 20250909
  Transmission Date: 20251020
  Serious: Yes (Hospitalization)
  Sender: FDA-CTU
  Company Number: None

PATIENT
  Age: 16 Year
  Sex: Female
  Weight: 44.1 kg

DRUGS (2)
  1. CYCLOPHOSPHAMIDE [Suspect]
     Active Substance: CYCLOPHOSPHAMIDE
     Dates: end: 20250902
  2. VINORELBINE TARTRATE [Suspect]
     Active Substance: VINORELBINE TARTRATE
     Dates: end: 20250829

REACTIONS (6)
  - Escherichia test positive [None]
  - Candida test positive [None]
  - Symptom recurrence [None]
  - Perirectal abscess [None]
  - Klebsiella test positive [None]
  - Febrile neutropenia [None]

NARRATIVE: CASE EVENT DATE: 20250902
